FAERS Safety Report 20310908 (Version 3)
Quarter: 2022Q1

REPORT INFORMATION
  Report Type: Report from Study
  Country: GB (occurrence: GB)
  Receive Date: 20220107
  Receipt Date: 20220214
  Transmission Date: 20220423
  Serious: Yes (Death)
  Sender: FDA-Public Use
  Company Number: GB-CELGENE-GBR-20220101488

PATIENT
  Age: 86 Year
  Sex: Female
  Weight: 57 kg

DRUGS (2)
  1. LENALIDOMIDE [Suspect]
     Active Substance: LENALIDOMIDE
     Indication: Mantle cell lymphoma
     Dosage: 20 MILLIGRAM
     Route: 048
     Dates: start: 20210924, end: 20211006
  2. RITUXIMAB [Concomitant]
     Active Substance: RITUXIMAB
     Indication: Product used for unknown indication
     Route: 065

REACTIONS (1)
  - Mantle cell lymphoma [Fatal]

NARRATIVE: CASE EVENT DATE: 20211007
